FAERS Safety Report 19025235 (Version 1)
Quarter: 2021Q1

REPORT INFORMATION
  Report Type: Spontaneous
  Country: US (occurrence: US)
  Receive Date: 20210316
  Receipt Date: 20210316
  Transmission Date: 20210420
  Serious: Yes (Life-Threatening, Hospitalization)
  Sender: FDA-Public Use
  Company Number: None

PATIENT
  Age: 68 Year
  Sex: Male
  Weight: 83 kg

DRUGS (1)
  1. PIPERACILLIN. [Suspect]
     Active Substance: PIPERACILLIN SODIUM
     Indication: URINARY TRACT INFECTION
     Route: 042
     Dates: start: 20190608, end: 20190608

REACTIONS (3)
  - Acute kidney injury [None]
  - Drug hypersensitivity [None]
  - Renal tubular necrosis [None]

NARRATIVE: CASE EVENT DATE: 20190624
